FAERS Safety Report 15936649 (Version 1)
Quarter: 2019Q1

REPORT INFORMATION
  Report Type: Spontaneous
  Country: US (occurrence: US)
  Receive Date: 20190117
  Receipt Date: 20190117
  Transmission Date: 20190417
  Serious: No
  Sender: FDA-Public Use
  Company Number: None

PATIENT
  Age: 66 Year
  Sex: Male

DRUGS (1)
  1. INLYTA [Suspect]
     Active Substance: AXITINIB
     Indication: RENAL CELL CARCINOMA
     Dates: start: 201701

REACTIONS (3)
  - Decreased appetite [None]
  - Diarrhoea [None]
  - Hypertension [None]

NARRATIVE: CASE EVENT DATE: 20170101
